FAERS Safety Report 14314173 (Version 1)
Quarter: 2017Q4

REPORT INFORMATION
  Report Type: Spontaneous
  Country: US (occurrence: US)
  Receive Date: 20171221
  Receipt Date: 20171221
  Transmission Date: 20180321
  Serious: Yes (Hospitalization)
  Sender: FDA-Public Use
  Company Number: None

PATIENT
  Age: 77 Year
  Sex: Male
  Weight: 92 kg

DRUGS (3)
  1. DEXAMETHASONE. [Suspect]
     Active Substance: DEXAMETHASONE
     Dates: end: 20171215
  2. LENALIDOMIDE (CC-5013) [Suspect]
     Active Substance: LENALIDOMIDE
     Dates: end: 20171217
  3. VELCADE [Suspect]
     Active Substance: BORTEZOMIB
     Dates: end: 20171214

REACTIONS (4)
  - Syncope [None]
  - Thrombocytopenia [None]
  - Hypophagia [None]
  - Orthostatic hypotension [None]

NARRATIVE: CASE EVENT DATE: 20171217
